FAERS Safety Report 24686316 (Version 1)
Quarter: 2024Q4

REPORT INFORMATION
  Report Type: Spontaneous
  Country: NZ (occurrence: NZ)
  Receive Date: 20241202
  Receipt Date: 20241202
  Transmission Date: 20250114
  Serious: Yes (Death, Other)
  Sender: SANDOZ
  Company Number: NZ-SANDOZ-SDZ2024NZ098771

PATIENT
  Sex: Female

DRUGS (1)
  1. ESTRADIOL [Suspect]
     Active Substance: ESTRADIOL
     Indication: Menopausal depression
     Dosage: UNK
     Route: 065

REACTIONS (6)
  - Death [Fatal]
  - Mental disorder [Unknown]
  - Incorrect dose administered [Unknown]
  - Wrong technique in product usage process [Unknown]
  - Product supply issue [Unknown]
  - Therapy interrupted [Unknown]

NARRATIVE: CASE EVENT DATE: 20240101
